FAERS Safety Report 25680219 (Version 2)
Quarter: 2025Q3

REPORT INFORMATION
  Report Type: Spontaneous
  Country: US (occurrence: US)
  Receive Date: 20250814
  Receipt Date: 20250818
  Transmission Date: 20251020
  Serious: No
  Sender: Haleon PLC
  Company Number: US-HALEON-2257704

PATIENT
  Age: 64 Year
  Sex: Female

DRUGS (1)
  1. ROBITUSSIN LONG-ACTING COUGH SOFT CHEWS [Suspect]
     Active Substance: DEXTROMETHORPHAN HYDROBROMIDE
     Indication: Cough
     Dates: start: 20250810, end: 20250810

REACTIONS (1)
  - Retching [Recovered/Resolved]
